FAERS Safety Report 21303414 (Version 4)
Quarter: 2023Q1

REPORT INFORMATION
  Report Type: Spontaneous
  Country: GB (occurrence: GB)
  Receive Date: 20220907
  Receipt Date: 20230328
  Transmission Date: 20230418
  Serious: Yes (Hospitalization)
  Sender: FDA-Public Use
  Company Number: GB-MYLANLABS-2022M1091859

PATIENT
  Sex: Male

DRUGS (4)
  1. CLOZARIL [Suspect]
     Active Substance: CLOZAPINE
     Indication: Schizophrenia
     Dosage: 250 MILLIGRAM, QD (100 MG IN THE MORNING, 150 MG AT NIGHT)
     Route: 048
     Dates: start: 20190520
  2. AMISULPRIDE [Concomitant]
     Active Substance: AMISULPRIDE
     Indication: Tachycardia
     Dosage: 100 MILLIGRAM, BID
     Route: 065
  3. BISOPROLOL [Concomitant]
     Active Substance: BISOPROLOL
     Indication: Tachycardia
     Dosage: 3.75 MILLIGRAM, QD, OD
     Route: 065
  4. LORAZEPAM [Concomitant]
     Active Substance: LORAZEPAM
     Dosage: 1 MG WHEN REQUIRED MAX 4 MG IN 24 HOURS
     Route: 065

REACTIONS (4)
  - Mental disorder [Unknown]
  - Delusion [Unknown]
  - Therapy interrupted [Unknown]
  - Treatment noncompliance [Unknown]
